FAERS Safety Report 9046869 (Version 1)
Quarter: 2013Q1

REPORT INFORMATION
  Report Type: Spontaneous
  Country: US (occurrence: None)
  Receive Date: 20130129
  Receipt Date: 20130129
  Transmission Date: 20140127
  Serious: No
  Sender: FDA-Public Use
  Company Number: None

PATIENT
  Age: 65 Year
  Sex: Male

DRUGS (1)
  1. XTANDI [Suspect]
     Route: 048
     Dates: start: 20130105, end: 20130115

REACTIONS (3)
  - Fatigue [None]
  - Decreased appetite [None]
  - Bone pain [None]
